FAERS Safety Report 8214971-9 (Version None)
Quarter: 2012Q1

REPORT INFORMATION
  Report Type: 
  Country: None (occurrence: None)
  Receive Date: 20120316
  Receipt Date: 20120305
  Transmission Date: 20120608
  Serious: Yes (Hospitalization)
  Sender: FDA-Public Use
  Company Number: DE-TEVA-326529GER

PATIENT
  Age: 40 Year
  Sex: Female

DRUGS (2)
  1. PREDNISOLONE [Concomitant]
     Indication: AUTOIMMUNE HEPATITIS
  2. BUDESONIDE [Suspect]
     Indication: AUTOIMMUNE HEPATITIS
     Dosage: 9 MILLIGRAM;
     Route: 065

REACTIONS (1)
  - BUDD-CHIARI SYNDROME [None]
